FAERS Safety Report 8296484 (Version 2)
Quarter: 2012Q4

REPORT INFORMATION
  Report Type: 
  Country: US (occurrence: US)
  Receive Date: 20111216
  Receipt Date: 20121218
  Transmission Date: 20130627
  Serious: No
  Sender: FDA-Public Use
  Company Number: US-BRISTOL-MYERS SQUIBB COMPANY-16203838

PATIENT
  Age: 39 Year
  Sex: Female

DRUGS (5)
  1. ABILIFY [Suspect]
     Indication: ANXIETY
     Dosage: QHS
31Aug11:2mg,7Sep11:5mg,16Nov11 decreased.
     Route: 048
     Dates: start: 20110831
  2. ABILIFY [Suspect]
     Indication: DEPRESSION
     Dosage: QHS
31Aug11:2mg,7Sep11:5mg,16Nov11 decreased.
     Route: 048
     Dates: start: 20110831
  3. PROZAC [Suspect]
     Indication: DEPRESSION
     Dosage: started prior to 2008
     Route: 048
  4. PROZAC [Suspect]
     Indication: ANXIETY
     Dosage: started prior to 2008
     Route: 048
  5. WELLBUTRIN XL [Suspect]
     Indication: DEPRESSION
     Dosage: started prior to 2008
     Route: 048

REACTIONS (2)
  - Gastrooesophageal reflux disease [Recovered/Resolved]
  - Vomiting [Recovered/Resolved]
